FAERS Safety Report 12378861 (Version 4)
Quarter: 2016Q3

REPORT INFORMATION
  Report Type: Spontaneous
  Country: US (occurrence: US)
  Receive Date: 20160517
  Receipt Date: 20160810
  Transmission Date: 20161109
  Serious: Yes (Hospitalization, Other)
  Sender: FDA-Public Use
  Company Number: US-TEVA-659804USA

PATIENT
  Age: 24 Year
  Sex: Male

DRUGS (3)
  1. CIMETIDINE [Suspect]
     Active Substance: CIMETIDINE
     Indication: DRUG ABUSE
     Route: 065
  2. SODIUM BICARBONATE. [Suspect]
     Active Substance: SODIUM BICARBONATE
     Indication: ELECTROCARDIOGRAM QRS COMPLEX PROLONGED
     Route: 065
  3. LOPERAMIDE [Suspect]
     Active Substance: LOPERAMIDE
     Indication: OVERDOSE
     Dosage: UP TO 400 MG DAILY
     Route: 065

REACTIONS (8)
  - Electrocardiogram QRS complex prolonged [Recovered/Resolved]
  - Electrocardiogram QRS complex shortened [Recovered/Resolved]
  - Ventricular tachycardia [Recovered/Resolved]
  - Overdose [Recovered/Resolved]
  - Asthenia [Unknown]
  - Drug abuse [Recovered/Resolved]
  - Arrhythmia [Recovered/Resolved]
  - Electrocardiogram QT prolonged [Recovered/Resolved]
